FAERS Safety Report 4681704-2 (Version None)
Quarter: 2005Q2

REPORT INFORMATION
  Report Type: 
  Country: None (occurrence: None)
  Receive Date: 20050603
  Receipt Date: 20021014
  Transmission Date: 20051028
  Serious: Yes (Hospitalization, Disabling, Other)
  Sender: FDA-Public Use
  Company Number: US-MERCK-0210USA01484

PATIENT
  Age: 34 Year
  Sex: Female
  Weight: 84 kg

DRUGS (11)
  1. VIOXX [Suspect]
     Indication: ARTHRALGIA
     Route: 048
     Dates: start: 20010101, end: 20010119
  2. VIOXX [Suspect]
     Route: 048
     Dates: start: 20001001, end: 20001121
  3. VIOXX [Suspect]
     Route: 048
     Dates: start: 20010128
  4. VIOXX [Suspect]
     Route: 048
     Dates: start: 20000601
  5. VIOXX [Suspect]
     Indication: PAIN
     Route: 048
     Dates: start: 20010101, end: 20010119
  6. VIOXX [Suspect]
     Route: 048
     Dates: start: 20001001, end: 20001121
  7. VIOXX [Suspect]
     Route: 048
     Dates: start: 20010128
  8. VIOXX [Suspect]
     Route: 048
     Dates: start: 20000601
  9. BAYCOL [Concomitant]
     Indication: BLOOD CHOLESTEROL INCREASED
     Route: 065
     Dates: end: 20001121
  10. ACTOS [Concomitant]
     Indication: DIABETES MELLITUS NON-INSULIN-DEPENDENT
     Route: 065
     Dates: end: 20001123
  11. [COMPOSITION UNSPECIFIED] [Concomitant]
     Route: 065

REACTIONS (35)
  - ABDOMINAL PAIN UPPER [None]
  - BACK PAIN [None]
  - BLOOD TRIGLYCERIDES INCREASED [None]
  - CHEST PAIN [None]
  - CHROMATURIA [None]
  - CHRONIC FATIGUE SYNDROME [None]
  - CONSTIPATION [None]
  - CONVULSION [None]
  - COSTOCHONDRITIS [None]
  - CYANOSIS [None]
  - DEPRESSION [None]
  - DIABETES MELLITUS INADEQUATE CONTROL [None]
  - DIZZINESS [None]
  - DRUG HYPERSENSITIVITY [None]
  - DRUG INEFFECTIVE [None]
  - EMOTIONAL DISTRESS [None]
  - FATIGUE [None]
  - GENERAL PHYSICAL HEALTH DETERIORATION [None]
  - HYPERTENSION [None]
  - INSOMNIA [None]
  - MACULAR OEDEMA [None]
  - MUSCLE SPASMS [None]
  - MYALGIA [None]
  - MYOCARDIAL INFARCTION [None]
  - NEURITIS [None]
  - NEUROPATHY PERIPHERAL [None]
  - NON-CARDIAC CHEST PAIN [None]
  - OEDEMA PERIPHERAL [None]
  - PAIN [None]
  - PERIPHERAL VASCULAR DISORDER [None]
  - RESTLESS LEGS SYNDROME [None]
  - RETINOPATHY [None]
  - ROAD TRAFFIC ACCIDENT [None]
  - SERUM FERRITIN DECREASED [None]
  - TACHYCARDIA [None]
